FAERS Safety Report 15302560 (Version 2)
Quarter: 2018Q3

REPORT INFORMATION
  Report Type: Spontaneous
  Country: GB (occurrence: GB)
  Receive Date: 20180821
  Receipt Date: 20180821
  Transmission Date: 20181010
  Serious: Yes (Other)
  Sender: FDA-Public Use
  Company Number: PHHY2018GB044219

PATIENT
  Sex: Male

DRUGS (10)
  1. METHYLPREDNISOLONE. [Suspect]
     Active Substance: METHYLPREDNISOLONE
     Indication: IMMUNOSUPPRESSION
  2. INFLIXIMAB [Suspect]
     Active Substance: INFLIXIMAB
     Indication: GRAFT VERSUS HOST DISEASE
     Route: 042
  3. RUXOLITINIB [Suspect]
     Active Substance: RUXOLITINIB
     Indication: IMMUNOSUPPRESSANT DRUG THERAPY
  4. RUXOLITINIB [Suspect]
     Active Substance: RUXOLITINIB
     Indication: GRAFT VERSUS HOST DISEASE IN GASTROINTESTINAL TRACT
     Route: 048
  5. BASILIXIMAB [Suspect]
     Active Substance: BASILIXIMAB
     Indication: IMMUNOSUPPRESSANT DRUG THERAPY
  6. RUXOLITINIB [Suspect]
     Active Substance: RUXOLITINIB
     Indication: GRAFT VERSUS HOST DISEASE
  7. BUDESONIDE. [Suspect]
     Active Substance: BUDESONIDE
     Indication: GRAFT VERSUS HOST DISEASE
     Route: 048
  8. BASILIXIMAB [Suspect]
     Active Substance: BASILIXIMAB
     Indication: GRAFT VERSUS HOST DISEASE
     Route: 042
  9. METHYLPREDNISOLONE. [Suspect]
     Active Substance: METHYLPREDNISOLONE
     Indication: GRAFT VERSUS HOST DISEASE
     Route: 042
  10. INFLIXIMAB [Suspect]
     Active Substance: INFLIXIMAB
     Indication: IMMUNOSUPPRESSANT DRUG THERAPY

REACTIONS (4)
  - Off label use [Unknown]
  - Product use in unapproved indication [Unknown]
  - Product use issue [Unknown]
  - Adenovirus infection [Recovered/Resolved]
